FAERS Safety Report 21840963 (Version 1)
Quarter: 2023Q1

REPORT INFORMATION
  Report Type: Spontaneous
  Country: PT (occurrence: PT)
  Receive Date: 20230110
  Receipt Date: 20230110
  Transmission Date: 20230418
  Serious: Yes (Life-Threatening, Hospitalization, Other)
  Sender: FDA-Public Use
  Company Number: None

PATIENT
  Age: 43 Year
  Sex: Male

DRUGS (12)
  1. AMOXICILLIN\CLAVULANIC ACID [Suspect]
     Active Substance: AMOXICILLIN\CLAVULANIC ACID
     Indication: Tonsillitis
     Dosage: UNK
     Route: 065
  2. PIPERACILLIN AND TAZOBACTAM [Suspect]
     Active Substance: PIPERACILLIN SODIUM\TAZOBACTAM SODIUM
     Indication: Lymphadenopathy
     Dosage: UNK
     Route: 065
  3. PIPERACILLIN AND TAZOBACTAM [Suspect]
     Active Substance: PIPERACILLIN SODIUM\TAZOBACTAM SODIUM
     Indication: Odynophagia
  4. MEROPENEM [Suspect]
     Active Substance: MEROPENEM
     Indication: Lymphadenopathy
     Dosage: UNK
     Route: 065
  5. MEROPENEM [Suspect]
     Active Substance: MEROPENEM
     Indication: Odynophagia
  6. VANCOMYCIN [Suspect]
     Active Substance: VANCOMYCIN
     Indication: Odynophagia
     Dosage: UNK
     Route: 065
  7. VANCOMYCIN [Suspect]
     Active Substance: VANCOMYCIN
     Indication: Lymphadenopathy
  8. PENICILLIN G [Suspect]
     Active Substance: PENICILLIN G
     Indication: Tonsillitis
     Dosage: 3 DOSAGE FORM (1 TOTAL)
     Route: 065
  9. PENICILLIN G [Suspect]
     Active Substance: PENICILLIN G
     Indication: Odynophagia
  10. PENICILLIN G [Suspect]
     Active Substance: PENICILLIN G
     Indication: Pyrexia
  11. FILGRASTIM [Suspect]
     Active Substance: FILGRASTIM
     Indication: Odynophagia
     Dosage: UNK
     Route: 065
  12. FILGRASTIM [Suspect]
     Active Substance: FILGRASTIM
     Indication: Lymphadenopathy

REACTIONS (6)
  - Agranulocytosis [Recovered/Resolved]
  - Odynophagia [Recovered/Resolved]
  - Leukopenia [Recovered/Resolved]
  - Pyrexia [Recovered/Resolved]
  - Lymphadenopathy [Recovered/Resolved]
  - Off label use [Unknown]
